FAERS Safety Report 17598576 (Version 1)
Quarter: 2020Q1

REPORT INFORMATION
  Report Type: Spontaneous
  Country: US (occurrence: US)
  Receive Date: 20200329
  Receipt Date: 20200329
  Transmission Date: 20200409
  Serious: No
  Sender: FDA-Public Use
  Company Number: None

PATIENT
  Age: 66 Year
  Sex: Female
  Weight: 56.25 kg

DRUGS (12)
  1. CALCIUM [Concomitant]
     Active Substance: CALCIUM
  2. PROBIOTIC [Concomitant]
     Active Substance: PROBIOTICS NOS
  3. FOLIC ACID. [Concomitant]
     Active Substance: FOLIC ACID
  4. CITRACAL PLUS D [Concomitant]
  5. LEVOTHYROXINE. [Concomitant]
     Active Substance: LEVOTHYROXINE
  6. ALBUTEROL. [Concomitant]
     Active Substance: ALBUTEROL
  7. RECLAST [Suspect]
     Active Substance: ZOLEDRONIC ACID
     Indication: OSTEOPOROSIS
     Dosage: ?          OTHER FREQUENCY:1;OTHER ROUTE:INFUSION?
     Dates: start: 20191028, end: 20191028
  8. ESOMEPRAZOLE. [Concomitant]
     Active Substance: ESOMEPRAZOLE MAGNESIUM
  9. DULERA [Concomitant]
     Active Substance: FORMOTEROL FUMARATE DIHYDRATE\MOMETASONE FUROATE
  10. POTASSIUM CITRATE. [Concomitant]
     Active Substance: POTASSIUM CITRATE
  11. VITAMIN D [Concomitant]
     Active Substance: VITAMIN D NOS
  12. MAGNESIUM [Concomitant]
     Active Substance: MAGNESIUM

REACTIONS (12)
  - Impaired quality of life [None]
  - Neck pain [None]
  - Musculoskeletal pain [None]
  - Tendon pain [None]
  - Insomnia [None]
  - Arthralgia [None]
  - Myalgia [None]
  - Pruritus [None]
  - Pain in extremity [None]
  - Erythema [None]
  - Gait disturbance [None]
  - Movement disorder [None]

NARRATIVE: CASE EVENT DATE: 20191028
